FAERS Safety Report 8111751-X (Version None)
Quarter: 2012Q1

REPORT INFORMATION
  Report Type: 
  Country: None (occurrence: None)
  Receive Date: 20120131
  Receipt Date: 20120120
  Transmission Date: 20120608
  Serious: Yes (Hospitalization, Other)
  Sender: FDA-Public Use
  Company Number: KAD201201-000079

PATIENT
  Age: 55 Year
  Sex: Male

DRUGS (3)
  1. VICTRELIS [Suspect]
     Indication: HEPATITIS C
     Dates: start: 20111222
  2. PEG-INTRON [Suspect]
     Indication: HEPATITIS C
     Dates: start: 20111124
  3. RIBAVIRIN [Suspect]
     Indication: HEPATITIS C
     Dates: start: 20111124

REACTIONS (5)
  - DYSPNOEA [None]
  - DIARRHOEA [None]
  - HAEMORRHAGE [None]
  - LIMB INJURY [None]
  - CHEST PAIN [None]
